FAERS Safety Report 12124801 (Version 2)
Quarter: 2016Q1

REPORT INFORMATION
  Report Type: Spontaneous
  Country: US (occurrence: US)
  Receive Date: 20160229
  Receipt Date: 20160229
  Transmission Date: 20160526
  Serious: Yes (Other)
  Sender: FDA-Public Use
  Company Number: US-ABBVIE-15P-163-1463649-00

PATIENT
  Sex: Male

DRUGS (1)
  1. ANDROGEL [Suspect]
     Active Substance: TESTOSTERONE
     Indication: ANDROGEN REPLACEMENT THERAPY
     Route: 061

REACTIONS (9)
  - Fear [Not Recovered/Not Resolved]
  - Injury [Unknown]
  - Anhedonia [Unknown]
  - Ischaemic stroke [Unknown]
  - Impaired work ability [Unknown]
  - Angiopathy [Unknown]
  - Physical disability [Unknown]
  - Social problem [Unknown]
  - Economic problem [Unknown]
